FAERS Safety Report 21015601 (Version 3)
Quarter: 2022Q3

REPORT INFORMATION
  Report Type: Report from Study
  Country: US (occurrence: US)
  Receive Date: 20220628
  Receipt Date: 20220818
  Transmission Date: 20221027
  Serious: Yes (Hospitalization, Other)
  Sender: FDA-Public Use
  Company Number: US-ABBVIE-22K-163-4405386-00

PATIENT
  Sex: Male

DRUGS (4)
  1. IMBRUVICA [Suspect]
     Active Substance: IBRUTINIB
     Indication: Mantle cell lymphoma
     Route: 048
     Dates: start: 202205, end: 2022
  2. IMBRUVICA [Suspect]
     Active Substance: IBRUTINIB
     Route: 048
     Dates: start: 20220622, end: 2022
  3. IMBRUVICA [Suspect]
     Active Substance: IBRUTINIB
     Route: 048
     Dates: start: 202205, end: 2022
  4. IMBRUVICA [Suspect]
     Active Substance: IBRUTINIB
     Indication: Product used for unknown indication
     Route: 048
     Dates: end: 20220728

REACTIONS (15)
  - Haemorrhage subcutaneous [Unknown]
  - Peripheral swelling [Unknown]
  - Lung disorder [Unknown]
  - Erythema [Unknown]
  - Contusion [Unknown]
  - Dysuria [Unknown]
  - Abdominal distension [Unknown]
  - Blood urine present [Unknown]
  - White blood cell count increased [Unknown]
  - Prostatomegaly [Unknown]
  - Haematoma [Unknown]
  - Skin discolouration [Unknown]
  - Device leakage [Unknown]
  - Fatigue [Unknown]
  - Insomnia [Unknown]

NARRATIVE: CASE EVENT DATE: 20220101
